FAERS Safety Report 9816420 (Version 1)
Quarter: 2014Q1

REPORT INFORMATION
  Report Type: Spontaneous
  Country: US (occurrence: US)
  Receive Date: 20140114
  Receipt Date: 20140114
  Transmission Date: 20141002
  Serious: Yes (Other)
  Sender: FDA-Public Use
  Company Number: US-ELI_LILLY_AND_COMPANY-US201401001650

PATIENT
  Age: 16 Year
  Sex: Female
  Weight: 77.1 kg

DRUGS (3)
  1. HUMALOG LISPRO [Suspect]
     Indication: PRODUCT USED FOR UNKNOWN INDICATION
     Route: 058
  2. HUMALOG LISPRO [Suspect]
     Dosage: UNK
  3. LANTUS [Concomitant]
     Dosage: UNK, UNKNOWN

REACTIONS (8)
  - Diabetic ketoacidosis [Unknown]
  - Blood glucose increased [Unknown]
  - Nausea [Unknown]
  - Vomiting [Unknown]
  - Thirst [Unknown]
  - Micturition disorder [Unknown]
  - Irritability [Unknown]
  - Abdominal pain [Unknown]
